FAERS Safety Report 9015997 (Version 1)
Quarter: 2013Q1

REPORT INFORMATION
  Report Type: Spontaneous
  Country: US (occurrence: US)
  Receive Date: 20130116
  Receipt Date: 20130116
  Transmission Date: 20140127
  Serious: Yes (Life-Threatening, Other)
  Sender: FDA-Public Use
  Company Number: US-009507513-1301USA003488

PATIENT
  Age: 70 Year
  Sex: Female

DRUGS (16)
  1. SINGULAIR [Suspect]
     Route: 048
  2. PANTOPRAZOLE SODIUM [Suspect]
     Indication: ASTHMA
  3. BRICANYL [Suspect]
     Indication: OSTEOPOROSIS
     Dosage: RESPIRATORY (INHALATION)
  4. XOLAIR [Suspect]
     Dosage: UNKNOWN
     Route: 058
  5. XOLAIR [Suspect]
     Dosage: UNKNOWN
  6. PREDNISONE [Suspect]
     Route: 048
  7. ATROVENT [Suspect]
     Dosage: RESPIRATORY (INHALATION)
  8. SYMBICORT [Suspect]
     Dosage: 320/9 UG PER DOSE, TWO INHALATIONS PER DAY, RESPIRATORY (INHALATION)
  9. ALDACTONE TABLETS [Suspect]
  10. FENOFIBRATE [Suspect]
  11. DEDROGYL [Suspect]
  12. CACIT VITAMINE D3 [Suspect]
  13. UTEPLEX [Suspect]
  14. ACETAMINOPHEN [Suspect]
  15. DESLORATADINE [Suspect]
  16. PROTELOS [Suspect]
     Route: 048

REACTIONS (3)
  - Pancoast^s syndrome [Unknown]
  - Lung neoplasm malignant [Unknown]
  - Drug ineffective [Unknown]
